FAERS Safety Report 6493000-1 (Version None)
Quarter: 2009Q4

REPORT INFORMATION
  Report Type: 
  Country: None (occurrence: None)
  Receive Date: 20091209
  Receipt Date: 20091130
  Transmission Date: 20100525
  Serious: Yes (Other)
  Sender: FDA-Public Use
  Company Number: 0911-SPO-SPLN-0171

PATIENT
  Sex: 0

DRUGS (1)
  1. SUPPRELIN LA [Suspect]
     Indication: PRECOCIOUS PUBERTY
     Dosage: 1 IN 1 Y, SUB Q. IMPLANT
     Dates: start: 20081210

REACTIONS (1)
  - PSYCHOTIC DISORDER [None]
